FAERS Safety Report 20707638 (Version 1)
Quarter: 2022Q2

REPORT INFORMATION
  Report Type: Spontaneous
  Country: FR (occurrence: None)
  Receive Date: 20220413
  Receipt Date: 20220413
  Transmission Date: 20220721
  Serious: Yes (Hospitalization)
  Sender: FDA-Public Use
  Company Number: None

PATIENT
  Age: 94 Year
  Sex: Male
  Weight: 68 kg

DRUGS (7)
  1. ERIVEDGE [Suspect]
     Active Substance: VISMODEGIB
     Indication: Basal cell carcinoma
     Route: 048
     Dates: start: 20191007, end: 20200205
  2. DOLIPRANE [Suspect]
     Active Substance: ACETAMINOPHEN
     Indication: Myelodysplastic syndrome
     Dosage: UNKNOWN
     Route: 048
     Dates: end: 20200205
  3. CANDESARTAN CILEXETIL [Suspect]
     Active Substance: CANDESARTAN CILEXETIL
     Indication: Hypertension
     Dosage: UNKNOWN
     Route: 048
     Dates: end: 20200205
  4. TAMSULOSIN HYDROCHLORIDE [Suspect]
     Active Substance: TAMSULOSIN HYDROCHLORIDE
     Indication: Prostatomegaly
     Dosage: UNKNOWN
     Route: 048
     Dates: end: 20200205
  5. BETAHISTINE HYDROCHLORIDE [Suspect]
     Active Substance: BETAHISTINE HYDROCHLORIDE
     Indication: Balance disorder
     Dosage: UNKNOWN
     Route: 048
     Dates: end: 20200205
  6. FUROSEMIDE [Suspect]
     Active Substance: FUROSEMIDE
     Indication: Hypertension
     Dosage: UNKNOWN
     Route: 048
     Dates: end: 20200205
  7. ARANESP [Suspect]
     Active Substance: DARBEPOETIN ALFA
     Indication: Myelodysplastic syndrome
     Dosage: UNKNOWN
     Route: 048
     Dates: end: 20200205

REACTIONS (3)
  - Pyrexia [Unknown]
  - Pain [Unknown]
  - Dyspnoea [Unknown]

NARRATIVE: CASE EVENT DATE: 20200204
